FAERS Safety Report 24168870 (Version 1)
Quarter: 2024Q3

REPORT INFORMATION
  Report Type: Report from Study
  Country: GB (occurrence: GB)
  Receive Date: 20240802
  Receipt Date: 20240802
  Transmission Date: 20241016
  Serious: Yes (Hospitalization)
  Sender: TAKEDA
  Company Number: GB-TAKEDA-2023TUS116330

PATIENT
  Sex: Female

DRUGS (2)
  1. VEDOLIZUMAB [Suspect]
     Active Substance: VEDOLIZUMAB
     Indication: Crohn^s disease
     Dosage: 108 MILLIGRAM, Q2WEEKS
     Route: 058
  2. VEDOLIZUMAB [Suspect]
     Active Substance: VEDOLIZUMAB
     Indication: Crohn^s disease
     Dosage: 108 MILLIGRAM, Q2WEEKS
     Route: 058

REACTIONS (9)
  - Hospitalisation [Unknown]
  - Diarrhoea [Unknown]
  - Frequent bowel movements [Unknown]
  - Malaise [Unknown]
  - Drug ineffective [Unknown]
  - Product dose omission issue [Unknown]
  - Rash erythematous [Not Recovered/Not Resolved]
  - Abdominal pain [Unknown]
  - Fatigue [Unknown]
